FAERS Safety Report 8439735-2 (Version None)
Quarter: 2012Q2

REPORT INFORMATION
  Report Type: 
  Country: None (occurrence: None)
  Receive Date: 20120615
  Receipt Date: 20120606
  Transmission Date: 20120825
  Serious: Yes (Other)
  Sender: FDA-Public Use
  Company Number: JP-VERTEX PHARMACEUTICALS INC.-AE-2012-008086

PATIENT
  Age: 61 Year
  Sex: Male

DRUGS (8)
  1. PEG-INTRON [Concomitant]
     Indication: HEPATITIS C
     Route: 058
     Dates: start: 20120410
  2. REBETOL [Concomitant]
     Route: 048
     Dates: start: 20120501, end: 20120514
  3. VONAFEC SG [Concomitant]
     Route: 054
     Dates: start: 20120411, end: 20120412
  4. REBETOL [Concomitant]
     Route: 048
     Dates: start: 20120424, end: 20120430
  5. REBETOL [Concomitant]
     Route: 048
     Dates: start: 20120515
  6. REBETOL [Concomitant]
     Indication: HEPATITIS C
     Route: 048
     Dates: start: 20120410, end: 20120423
  7. VONAFEC SG [Concomitant]
     Route: 048
     Dates: start: 20120515
  8. TELAVIC (TELAPREVIR) [Suspect]
     Indication: HEPATITIS C
     Route: 048
     Dates: start: 20120410

REACTIONS (1)
  - ERYTHEMA MULTIFORME [None]
